FAERS Safety Report 8155558-6 (Version None)
Quarter: 2012Q1

REPORT INFORMATION
  Report Type: 
  Country: None (occurrence: None)
  Receive Date: 20120215
  Receipt Date: 20120208
  Transmission Date: 20120608
  Serious: Yes (Other)
  Sender: FDA-Public Use
  Company Number: GER/GER/12/0022969

PATIENT
  Age: 30 Year
  Sex: Female
  Weight: 80 kg

DRUGS (5)
  1. LAMOTRIGINE [Suspect]
     Indication: EPILEPSY
     Dosage: 150 MG, ORAL ; 375 MG, ORAL
     Route: 048
     Dates: start: 20100708, end: 20100928
  2. LAMOTRIGINE [Suspect]
     Indication: EPILEPSY
     Dosage: 150 MG, ORAL ; 375 MG, ORAL
     Route: 048
     Dates: start: 20100928, end: 20110211
  3. FOLSAURE RATIOPHARM (FOLIC ACID) [Concomitant]
  4. FRISIUM (CLOBAZAM) [Suspect]
     Indication: EPILEPSY
     Dosage: 2.5 MG, 3 IN 1 D, ORAL
     Route: 048
     Dates: start: 20101217, end: 20110211
  5. LEVOTHYROXINE SODIUM [Concomitant]

REACTIONS (6)
  - VITAMIN D DEFICIENCY [None]
  - PREMATURE DELIVERY [None]
  - FEMORAL NECK FRACTURE [None]
  - MATERNAL EXPOSURE DURING PREGNANCY [None]
  - CONVULSION [None]
  - CAESAREAN SECTION [None]
